FAERS Safety Report 15694933 (Version 1)
Quarter: 2018Q4

REPORT INFORMATION
  Report Type: Spontaneous
  Country: US (occurrence: US)
  Receive Date: 20181206
  Receipt Date: 20181206
  Transmission Date: 20190205
  Serious: No
  Sender: FDA-Public Use
  Company Number: US-ENDO PHARMACEUTICALS INC-2018-025831

PATIENT
  Sex: Male
  Weight: 77.1 kg

DRUGS (3)
  1. XIAFLEX [Suspect]
     Active Substance: COLLAGENASE CLOSTRIDIUM HISTOLYTICUM
     Dosage: UNK, CYCLE 2, ONE INJECTION (REGIMEN 2)
     Route: 026
     Dates: start: 20180315
  2. XIAFLEX [Suspect]
     Active Substance: COLLAGENASE CLOSTRIDIUM HISTOLYTICUM
     Indication: PEYRONIE^S DISEASE
     Dosage: UNK, 4 CYCLES, EIGHT INJECTIONS (REGIMEN 1)
     Route: 026
     Dates: start: 2017
  3. XIAFLEX [Suspect]
     Active Substance: COLLAGENASE CLOSTRIDIUM HISTOLYTICUM
     Dosage: UNK, CYCLE 1, TWO INJECTIONS (REGIMEN 2)
     Route: 026
     Dates: start: 2018

REACTIONS (4)
  - Drug effect decreased [Unknown]
  - Intentional product use issue [Unknown]
  - Drug effect delayed [Unknown]
  - Drug ineffective [Unknown]

NARRATIVE: CASE EVENT DATE: 2018
